FAERS Safety Report 17481157 (Version 2)
Quarter: 2020Q3

REPORT INFORMATION
  Report Type: Report from Study
  Country: None (occurrence: US)
  Receive Date: 20200302
  Receipt Date: 20200721
  Transmission Date: 20201102
  Serious: Yes (Other)
  Sender: FDA-Public Use
  Company Number: US-ABBVIE-20K-163-3297433-00

PATIENT
  Age: 67 Year
  Sex: Female

DRUGS (1)
  1. LEVOTHYROXINE. [Suspect]
     Active Substance: LEVOTHYROXINE
     Indication: PRODUCT USED FOR UNKNOWN INDICATION
     Route: 048

REACTIONS (1)
  - Shoulder operation [Not Recovered/Not Resolved]

NARRATIVE: CASE EVENT DATE: 20200226
